FAERS Safety Report 8529435-2 (Version None)
Quarter: 2012Q3

REPORT INFORMATION
  Report Type: 
  Country: None (occurrence: None)
  Receive Date: 20120723
  Receipt Date: 20120709
  Transmission Date: 20120928
  Serious: Yes (Other)
  Sender: FDA-Public Use
  Company Number: DE-RANBAXY-2012RR-58086

PATIENT
  Age: 77 Year
  Sex: Male

DRUGS (2)
  1. RISPERIDONE [Suspect]
     Indication: PRODUCT USED FOR UNKNOWN INDICATION
     Dosage: 0.25 MG, TID
     Route: 065
     Dates: end: 20110701
  2. RISPERIDONE [Suspect]
     Dosage: 1.5 MG/DAY
     Route: 065
     Dates: start: 20110801

REACTIONS (2)
  - PLEUROTHOTONUS [None]
  - MUSCULOSKELETAL STIFFNESS [None]
